FAERS Safety Report 13068016 (Version 1)
Quarter: 2016Q4

REPORT INFORMATION
  Report Type: Spontaneous
  Country: DE (occurrence: DE)
  Receive Date: 20161228
  Receipt Date: 20161228
  Transmission Date: 20170207
  Serious: Yes (Hospitalization, Other)
  Sender: FDA-Public Use
  Company Number: DE-AMGEN-DEUSP2016181680

PATIENT
  Age: 71 Year
  Sex: Female

DRUGS (2)
  1. PROLIA [Suspect]
     Active Substance: DENOSUMAB
     Indication: OSTEOPOROSIS
     Dosage: 60 MG, UNK
     Route: 058
     Dates: start: 201107, end: 201601
  2. DEKRISTOL [Concomitant]
     Active Substance: CHOLECALCIFEROL
     Dosage: 40 IU, QWK (20000 IU 2 IN 1 WEEKS)
     Route: 048
     Dates: start: 2011

REACTIONS (2)
  - Lumbar vertebral fracture [Not Recovered/Not Resolved]
  - Thoracic vertebral fracture [Not Recovered/Not Resolved]

NARRATIVE: CASE EVENT DATE: 20161002
